FAERS Safety Report 22870687 (Version 4)
Quarter: 2023Q4

REPORT INFORMATION
  Report Type: Spontaneous
  Country: US (occurrence: US)
  Receive Date: 20230828
  Receipt Date: 20231006
  Transmission Date: 20240109
  Serious: No
  Sender: FDA-Public Use
  Company Number: US-BIOGEN-2023BI01221648

PATIENT
  Sex: Female

DRUGS (2)
  1. TECFIDERA [Suspect]
     Active Substance: DIMETHYL FUMARATE
     Indication: Multiple sclerosis
     Dosage: STARTING DOSE
     Route: 050
  2. TECFIDERA [Suspect]
     Active Substance: DIMETHYL FUMARATE
     Dosage: MAINTENANCE DOSE
     Route: 050

REACTIONS (8)
  - Drug ineffective [Unknown]
  - Multiple sclerosis [Unknown]
  - Eyelid function disorder [Unknown]
  - Night blindness [Unknown]
  - Visual impairment [Unknown]
  - Eyelid ptosis [Unknown]
  - Photophobia [Unknown]
  - Multiple sclerosis relapse [Not Recovered/Not Resolved]
